FAERS Safety Report 9074623 (Version 1)
Quarter: 2013Q1

REPORT INFORMATION
  Report Type: Report from Study
  Country: US (occurrence: US)
  Receive Date: 20130128
  Receipt Date: 20130128
  Transmission Date: 20140127
  Serious: No
  Sender: FDA-Public Use
  Company Number: US-ABBOTT-12P-163-0915332-00

PATIENT
  Sex: Female

DRUGS (10)
  1. HUMIRA 40 MG/0.8 ML PEN [Suspect]
     Indication: RHEUMATOID ARTHRITIS
  2. DIOVAN [Concomitant]
     Indication: HYPERTENSION
  3. PREVASTATIN [Concomitant]
     Indication: BLOOD CHOLESTEROL INCREASED
  4. LEVOCETIRIZINE [Concomitant]
     Indication: HYPERSENSITIVITY
  5. NIFEDICAL XL [Concomitant]
     Indication: HYPERTENSION
  6. KLOR-CON [Concomitant]
     Indication: PRODUCT USED FOR UNKNOWN INDICATION
  7. HYDROCHLOROTHIAZIDE [Concomitant]
     Indication: PRODUCT USED FOR UNKNOWN INDICATION
  8. VIT D [Concomitant]
     Indication: PRODUCT USED FOR UNKNOWN INDICATION
  9. ASPIRIN [Concomitant]
     Indication: PRODUCT USED FOR UNKNOWN INDICATION
  10. EYE DROPS [Concomitant]
     Indication: HYPERSENSITIVITY

REACTIONS (2)
  - Wrong technique in drug usage process [Recovering/Resolving]
  - Incorrect route of drug administration [Recovering/Resolving]
